FAERS Safety Report 6044790-3 (Version None)
Quarter: 2009Q1

REPORT INFORMATION
  Report Type: 
  Country: None (occurrence: None)
  Receive Date: 20090120
  Receipt Date: 20080627
  Transmission Date: 20090719
  Serious: Yes (Hospitalization)
  Sender: FDA-Public Use
  Company Number: FR-ABBOTT-09P-056-0498019-00

PATIENT
  Sex: Male

DRUGS (8)
  1. ERYTHROCIN I.V. [Suspect]
     Indication: DRUG USE FOR UNKNOWN INDICATION
     Dosage: 70MG/50 ML IN 20 MIN
     Route: 042
     Dates: start: 20080417, end: 20080424
  2. TAHOR [Suspect]
     Indication: DRUG USE FOR UNKNOWN INDICATION
     Route: 048
     Dates: start: 20080415, end: 20080423
  3. CORDARONE [Suspect]
     Indication: DRUG USE FOR UNKNOWN INDICATION
     Route: 042
     Dates: start: 20080404, end: 20080420
  4. FLUCONAZOLE [Suspect]
     Indication: DRUG USE FOR UNKNOWN INDICATION
     Route: 042
     Dates: start: 20080415, end: 20080417
  5. CIPROFLOXACIN HYDROCHLORIDE [Concomitant]
     Indication: DRUG USE FOR UNKNOWN INDICATION
     Dates: start: 20080410, end: 20080425
  6. VANCOMYCIN HCL [Concomitant]
     Indication: DRUG USE FOR UNKNOWN INDICATION
     Dosage: 1 GRAM/50 ML
     Dates: start: 20080417, end: 20080425
  7. TIENAM [Concomitant]
     Indication: DRUG USE FOR UNKNOWN INDICATION
     Dosage: 1 GRAM/50 ML EVERY 24 HOURS
     Dates: start: 20080417, end: 20080425
  8. TAVANIC [Concomitant]
     Indication: DRUG USE FOR UNKNOWN INDICATION
     Dates: start: 20080404, end: 20080410

REACTIONS (1)
  - RHABDOMYOLYSIS [None]
